FAERS Safety Report 15340468 (Version 1)
Quarter: 2018Q3

REPORT INFORMATION
  Report Type: Spontaneous
  Country: US (occurrence: US)
  Receive Date: 20180831
  Receipt Date: 20180831
  Transmission Date: 20181010
  Serious: Yes (Other)
  Sender: FDA-Public Use
  Company Number: US-ASTRAZENECA-2013SE27053

PATIENT
  Sex: Female

DRUGS (1)
  1. BYDUREON [Suspect]
     Active Substance: EXENATIDE
     Dosage: UNK
     Route: 065
     Dates: start: 201304

REACTIONS (9)
  - Weight decreased [Unknown]
  - Weight increased [Unknown]
  - Memory impairment [Unknown]
  - Malaise [Unknown]
  - Drug dose omission [Unknown]
  - Device issue [Unknown]
  - Fatigue [Unknown]
  - Pulmonary hypertension [Unknown]
  - Decreased appetite [Unknown]

NARRATIVE: CASE EVENT DATE: 20180823
